FAERS Safety Report 7359174-5 (Version None)
Quarter: 2011Q1

REPORT INFORMATION
  Report Type: 
  Country: None (occurrence: None)
  Receive Date: 20110317
  Receipt Date: 20110310
  Transmission Date: 20110831
  Serious: Yes (Hospitalization, Other)
  Sender: FDA-Public Use
  Company Number: US-US-EMD SERONO, INC.-7024966

PATIENT
  Sex: Male

DRUGS (8)
  1. REBIF [Suspect]
     Indication: RELAPSING-REMITTING MULTIPLE SCLEROSIS
     Route: 058
     Dates: start: 20100921
  2. PLAVIX [Suspect]
     Route: 048
  3. UNSPECIFIED MEDICATION [Concomitant]
     Indication: PREMEDICATION
  4. CARBAMAZEPINE [Concomitant]
     Indication: CONVULSION
     Route: 048
  5. ZOCOR [Concomitant]
     Indication: LIPIDS INCREASED
     Route: 048
  6. ASPIRIN [Suspect]
     Route: 048
  7. HEART PILLS [Concomitant]
  8. NITROGLYCERIN [Concomitant]

REACTIONS (9)
  - PAIN [None]
  - CARDIAC PACEMAKER INSERTION [None]
  - DYSPNOEA [None]
  - VISION BLURRED [None]
  - AMNESIA [None]
  - EYE PAIN [None]
  - PYREXIA [None]
  - HAEMOPTYSIS [None]
  - ASTHENIA [None]
